FAERS Safety Report 7499191-8 (Version None)
Quarter: 2011Q2

REPORT INFORMATION
  Report Type: 
  Country: None (occurrence: None)
  Receive Date: 20110524
  Receipt Date: 20110511
  Transmission Date: 20111010
  Serious: Yes (Hospitalization, Other)
  Sender: FDA-Public Use
  Company Number: US-ELI_LILLY_AND_COMPANY-US201010007174

PATIENT
  Sex: Female

DRUGS (19)
  1. ASPIRIN [Concomitant]
     Dosage: 325 MG, DAILY (1/D)
     Route: 065
  2. HYDROCHLOROTHIAZIDE [Concomitant]
     Indication: OEDEMA PERIPHERAL
     Dosage: 50 MG, DAILY (1/D)
     Route: 065
  3. PRAVASTATIN SODIUM [Concomitant]
     Dosage: 40 MG, DAILY (1/D)
     Route: 065
  4. CARDIZEM [Concomitant]
     Dosage: 90 MG, 2/D
     Route: 065
  5. VITAMIN D [Concomitant]
     Dosage: UNK, 2/D
  6. FERROUS SULFATE TAB [Concomitant]
     Dosage: 325 MG, DAILY (1/D)
  7. LEXAPRO [Concomitant]
     Dosage: 20 MG, DAILY (1/D)
     Route: 065
  8. CLONIDINE HYDROCHLORIDE [Concomitant]
  9. FORTEO [Suspect]
     Indication: OSTEOPOROSIS
     Dosage: 20 UG, DAILY (1/D)
     Route: 065
  10. PRILOSEC [Concomitant]
     Dosage: 40 MG, EACH MORNING
  11. CALCIUM WITH VITAMIN D [Concomitant]
  12. FERROUS SULFATE TAB [Concomitant]
     Dosage: 325 MG, DAILY (1/D)
     Route: 065
  13. CLONIDINE HCL [Concomitant]
     Dosage: 0.1 MG, 2/D
     Route: 065
  14. IBUPROFEN [Concomitant]
     Indication: ARTHRITIS
  15. FORTEO [Suspect]
     Dosage: 20 UG, QD
  16. COLACE [Concomitant]
     Dosage: UNK, AS NEEDED
  17. MAGNESIUM OXIDE [Concomitant]
     Dosage: 800 MG, 2/D
     Route: 065
  18. PLAVIX [Concomitant]
     Dosage: 75 MG, DAILY (1/D)
     Route: 065
  19. SINOPRYL [Concomitant]
     Dosage: 3.25 MG, DAILY (1/D)
     Route: 065

REACTIONS (17)
  - GASTROINTESTINAL HAEMORRHAGE [None]
  - HEART RATE INCREASED [None]
  - DIARRHOEA HAEMORRHAGIC [None]
  - PERIORBITAL HAEMATOMA [None]
  - HAEMOGLOBIN DECREASED [None]
  - ECCHYMOSIS [None]
  - ASTHENIA [None]
  - HYPERTENSION [None]
  - FALL [None]
  - FACIAL BONES FRACTURE [None]
  - INJECTION SITE HAEMATOMA [None]
  - LOSS OF CONSCIOUSNESS [None]
  - COLOSTOMY [None]
  - HYPOTENSION [None]
  - MOVEMENT DISORDER [None]
  - CORONARY ARTERY OCCLUSION [None]
  - ARTHRALGIA [None]
